FAERS Safety Report 23932487 (Version 2)
Quarter: 2024Q2

REPORT INFORMATION
  Report Type: Spontaneous
  Country: CA (occurrence: CA)
  Receive Date: 20240603
  Receipt Date: 20240614
  Transmission Date: 20240716
  Serious: Yes (Other)
  Sender: FDA-Public Use
  Company Number: CA-MYLANLABS-2024M1047423

PATIENT
  Age: 26 Year
  Sex: Female

DRUGS (6)
  1. EPINEPHRINE [Suspect]
     Active Substance: EPINEPHRINE
     Indication: Local anaesthesia
     Dosage: UNK
     Route: 008
  2. EPINEPHRINE [Suspect]
     Active Substance: EPINEPHRINE
     Indication: Caesarean section
     Dosage: UNK
     Route: 065
  3. LIDOCAINE [Suspect]
     Active Substance: LIDOCAINE
     Indication: Local anaesthesia
     Dosage: UNK
     Route: 065
  4. LIDOCAINE [Suspect]
     Active Substance: LIDOCAINE
     Indication: Caesarean section
     Dosage: UNK
     Route: 065
  5. LIDOCAINE [Suspect]
     Active Substance: LIDOCAINE
     Indication: Local anaesthesia
     Dosage: 20 MILLILITER
     Route: 008
  6. LIDOCAINE [Suspect]
     Active Substance: LIDOCAINE
     Indication: Caesarean section
     Dosage: 4.0 MILLILITER
     Route: 008

REACTIONS (2)
  - Local anaesthetic systemic toxicity [Recovered/Resolved]
  - Maternal exposure during delivery [Unknown]
